FAERS Safety Report 8824395 (Version 1)
Quarter: 2012Q4

REPORT INFORMATION
  Report Type: 
  Country: US (occurrence: US)
  Receive Date: 20121004
  Receipt Date: 20121004
  Transmission Date: 20130627
  Serious: No
  Sender: FDA-Public Use
  Company Number: US-B.I. PHARMACEUTICALS,INC./RIDGEFIELD-2012-BP-23445BP

PATIENT
  Age: 69 Year
  Sex: Female
  Weight: 57 kg

DRUGS (4)
  1. SPIRIVA [Suspect]
     Indication: CHRONIC OBSTRUCTIVE PULMONARY DISEASE
     Dosage: 18 mcg
     Route: 055
     Dates: start: 201109
  2. SPIRIVA [Suspect]
     Route: 048
     Dates: start: 20120925, end: 20120925
  3. VIT D [Concomitant]
     Indication: NAIL GROWTH ABNORMAL
     Dosage: 500 mg
     Route: 048
     Dates: start: 20120914
  4. SYMBICORT [Concomitant]
     Indication: CHRONIC OBSTRUCTIVE PULMONARY DISEASE
     Route: 055
     Dates: start: 201109

REACTIONS (1)
  - Incorrect route of drug administration [Recovered/Resolved]
